FAERS Safety Report 8414045-8 (Version None)
Quarter: 2012Q2

REPORT INFORMATION
  Report Type: 
  Country: None (occurrence: None)
  Receive Date: 20120605
  Receipt Date: 20120531
  Transmission Date: 20120825
  Serious: Yes (Death, Hospitalization)
  Sender: FDA-Public Use
  Company Number: JP-JNJFOC-20091006406

PATIENT
  Sex: Female
  Weight: 42 kg

DRUGS (24)
  1. DOXORUBICIN HCL [Suspect]
     Dosage: CYCLE 12
     Route: 042
     Dates: start: 20100601, end: 20100601
  2. DECADRON [Concomitant]
     Route: 042
     Dates: start: 20090714
  3. DECADRON [Concomitant]
     Route: 048
  4. DOXORUBICIN HCL [Suspect]
     Dosage: CYCLE 11
     Route: 042
     Dates: start: 20100420, end: 20100420
  5. DOXORUBICIN HCL [Suspect]
     Dosage: CYCLE 17
     Route: 042
     Dates: start: 20101122, end: 20101122
  6. DOXORUBICIN HCL [Suspect]
     Dosage: CYCLE 4
     Route: 042
     Dates: start: 20091006, end: 20091006
  7. DOXORUBICIN HCL [Suspect]
     Dosage: CYCLE 1
     Route: 042
     Dates: start: 20090714, end: 20090714
  8. DECADRON [Concomitant]
     Route: 048
     Dates: start: 20090715, end: 20090914
  9. DOXORUBICIN HCL [Suspect]
     Dosage: CYCLE 5
     Route: 042
     Dates: start: 20091102, end: 20091102
  10. DOXORUBICIN HCL [Suspect]
     Dosage: CYCLE 13
     Route: 042
     Dates: start: 20100706, end: 20100706
  11. DOXORUBICIN HCL [Suspect]
     Dosage: CYCLE 15
     Route: 042
     Dates: start: 20100914, end: 20100914
  12. DECADRON [Concomitant]
     Indication: PROPHYLAXIS
     Route: 048
     Dates: start: 20090720, end: 20090914
  13. HACHIAZULE [Concomitant]
     Indication: PROPHYLAXIS
     Route: 002
     Dates: start: 20090714
  14. DOXORUBICIN HCL [Suspect]
     Dosage: CYCLE 6
     Route: 042
     Dates: start: 20091130, end: 20091130
  15. DOXORUBICIN HCL [Suspect]
     Dosage: CYCLE 8
     Route: 042
     Dates: start: 20100125, end: 20100125
  16. HEPARIN [Concomitant]
     Indication: PALMAR-PLANTAR ERYTHRODYSAESTHESIA SYNDROME
     Route: 061
     Dates: start: 20090811
  17. DOXORUBICIN HCL [Suspect]
     Dosage: CYCLE 9
     Route: 042
     Dates: start: 20100222, end: 20100222
  18. DOXORUBICIN HCL [Suspect]
     Dosage: CYCLE 16
     Route: 042
     Dates: start: 20101019, end: 20101019
  19. DOXORUBICIN HCL [Suspect]
     Dosage: CYCLE 3
     Route: 042
     Dates: start: 20090908, end: 20090908
  20. DECADRON [Concomitant]
     Route: 048
     Dates: start: 20090722, end: 20090914
  21. DOXORUBICIN HCL [Suspect]
     Indication: OVARIAN CANCER RECURRENT
     Dosage: CYCLE 2
     Route: 042
     Dates: start: 20090811, end: 20090811
  22. DOXORUBICIN HCL [Suspect]
     Dosage: CYCLE 7
     Route: 042
     Dates: start: 20091228, end: 20091228
  23. DOXORUBICIN HCL [Suspect]
     Dosage: CYCLE 10
     Route: 042
     Dates: start: 20100323, end: 20100323
  24. DOXORUBICIN HCL [Suspect]
     Dosage: CYCLE 14
     Route: 042
     Dates: start: 20100810, end: 20100810

REACTIONS (2)
  - GASTROINTESTINAL HAEMORRHAGE [None]
  - OVARIAN CANCER RECURRENT [None]
